FAERS Safety Report 4456346-4 (Version None)
Quarter: 2004Q3

REPORT INFORMATION
  Report Type: 
  Country: None (occurrence: None)
  Receive Date: 20040917
  Receipt Date: 20040907
  Transmission Date: 20050211
  Serious: Yes (Disabling)
  Sender: FDA-Public Use
  Company Number: 2004232464US

PATIENT
  Sex: Male
  Weight: 102.9 kg

DRUGS (5)
  1. DETROL LA [Suspect]
     Indication: HYPERTONIC BLADDER
     Dosage: SEE IMAGE
     Route: 048
     Dates: start: 19980101, end: 19980101
  2. DETROL LA [Suspect]
     Indication: HYPERTONIC BLADDER
     Dosage: SEE IMAGE
     Route: 048
     Dates: start: 20040831, end: 20040906
  3. CARDIZEM [Concomitant]
  4. GLIPIZIDE [Concomitant]
  5. LECITHIN [Concomitant]

REACTIONS (6)
  - BLOOD PRESSURE INCREASED [None]
  - DIABETIC NEUROPATHY [None]
  - FEELING ABNORMAL [None]
  - MYALGIA [None]
  - PERONEAL NERVE PALSY [None]
  - WALKING AID USER [None]
